FAERS Safety Report 8625160-8 (Version None)
Quarter: 2012Q3

REPORT INFORMATION
  Report Type: 
  Country: None (occurrence: None)
  Receive Date: 20120827
  Receipt Date: 20120822
  Transmission Date: 20120928
  Serious: Yes (Life-Threatening, Hospitalization)
  Sender: FDA-Public Use
  Company Number: US-BAXTER-2012BAX008508

PATIENT
  Sex: Female
  Weight: 119.4 kg

DRUGS (26)
  1. GABAPENTIN [Concomitant]
     Dosage: 2 TABLETS
  2. GAMMAGARD LIQUID [Suspect]
     Route: 042
     Dates: start: 20060901
  3. GAMMAGARD LIQUID [Suspect]
     Route: 042
     Dates: start: 20120429, end: 20120429
  4. KLONOPIN [Concomitant]
  5. CLOTRIMAZOLE [Concomitant]
     Route: 061
  6. COUMADIN [Concomitant]
  7. COZAAR [Concomitant]
  8. COUMADIN [Concomitant]
  9. POTASSIUM CHLORIDE [Concomitant]
  10. AMBIEN [Concomitant]
  11. ABILIFY [Concomitant]
  12. COUMADIN [Concomitant]
  13. DIPHENHYDRAMINE HYDROCHLORIDE [Concomitant]
  14. OMEPRAZOLE [Concomitant]
  15. PERCOCET [Concomitant]
     Dosage: 5/325MG; 1-2 TABLETS
  16. EPINEPHRINE [Concomitant]
  17. SINGULAIR [Concomitant]
  18. LYRICA [Concomitant]
  19. SUMATRIPTAN [Concomitant]
     Indication: MIGRAINE
  20. TRAMADOL HCL [Concomitant]
  21. ALBUTEROL [Concomitant]
     Dosage: 2 PUFFS
  22. FUROSEMIDE [Concomitant]
  23. LORATADINE [Concomitant]
  24. SUDAFED 12 HOUR [Concomitant]
     Dosage: 1-2 TABLETS
  25. FLUTICASONE PROPIONATE [Concomitant]
     Dosage: 2 SPRAYS IN EACH NOSTRIL
     Route: 045
  26. LOVASTATIN [Concomitant]

REACTIONS (10)
  - FLANK PAIN [None]
  - PYREXIA [None]
  - BRONCHITIS [None]
  - BRONCHOSPASM [None]
  - HYPOXIA [None]
  - NAUSEA [None]
  - SEPSIS [None]
  - DEHYDRATION [None]
  - PYELONEPHRITIS [None]
  - CHILLS [None]
